FAERS Safety Report 12995585 (Version 9)
Quarter: 2017Q3

REPORT INFORMATION
  Report Type: Report from Study
  Country: CA (occurrence: CA)
  Receive Date: 20161202
  Receipt Date: 20170823
  Transmission Date: 20171127
  Serious: Yes (Other)
  Sender: FDA-Public Use
  Company Number: CA-GLAXOSMITHKLINE-CA2016GSK178116

PATIENT
  Sex: Male

DRUGS (5)
  1. COSENTYX [Suspect]
     Active Substance: SECUKINUMAB
     Indication: PSORIASIS
     Dosage: 150 MG, QW
     Route: 058
     Dates: start: 20170518, end: 20170607
  2. COSENTYX [Suspect]
     Active Substance: SECUKINUMAB
     Dosage: 150 MG, QMO
     Route: 058
     Dates: start: 20170715
  3. COSENTYX [Suspect]
     Active Substance: SECUKINUMAB
     Dosage: 150 MG, QMO
     Route: 058
     Dates: start: 20170615
  4. DICLOFENAC [Suspect]
     Active Substance: DICLOFENAC
     Indication: PSORIATIC ARTHROPATHY
     Route: 065
  5. IBUPROFEN. [Concomitant]
     Active Substance: IBUPROFEN
     Route: 065

REACTIONS (10)
  - Feeling abnormal [Unknown]
  - Skin haemorrhage [Unknown]
  - Peripheral swelling [Recovering/Resolving]
  - Pain [Not Recovered/Not Resolved]
  - Muscle spasms [Unknown]
  - Psoriatic arthropathy [Recovering/Resolving]
  - Scratch [Unknown]
  - Joint swelling [Recovered/Resolved]
  - Psoriasis [Unknown]
  - Hypokinesia [Unknown]
